FAERS Safety Report 25626443 (Version 1)
Quarter: 2025Q3

REPORT INFORMATION
  Report Type: Spontaneous
  Country: AU (occurrence: AU)
  Receive Date: 20250731
  Receipt Date: 20250731
  Transmission Date: 20251021
  Serious: Yes (Hospitalization, Other)
  Sender: RANBAXY
  Company Number: AU-SUN PHARMACEUTICAL INDUSTRIES LTD-2025R1-519112

PATIENT
  Sex: Male

DRUGS (7)
  1. OCTREOTIDE [Suspect]
     Active Substance: OCTREOTIDE
     Indication: Hypoglycaemia
     Route: 058
  2. OCTREOTIDE [Suspect]
     Active Substance: OCTREOTIDE
     Route: 065
  3. OCTREOTIDE [Suspect]
     Active Substance: OCTREOTIDE
     Route: 058
  4. HYDROCHLOROTHIAZIDE [Suspect]
     Active Substance: HYDROCHLOROTHIAZIDE
     Indication: Hypoglycaemia
     Route: 065
  5. DEXTROSE [Suspect]
     Active Substance: DEXTROSE MONOHYDRATE
     Indication: Hypoglycaemia
     Route: 065
  6. DIAZOXIDE [Suspect]
     Active Substance: DIAZOXIDE
     Indication: Hypoglycaemia
     Route: 065
  7. GLUCAGON [Suspect]
     Active Substance: GLUCAGON
     Indication: Hypoglycaemia
     Route: 065

REACTIONS (2)
  - Drug ineffective for unapproved indication [Recovered/Resolved]
  - Off label use [Recovered/Resolved]
